FAERS Safety Report 10159320 (Version 1)
Quarter: 2014Q2

REPORT INFORMATION
  Report Type: Spontaneous
  Country: US (occurrence: None)
  Receive Date: 20140506
  Receipt Date: 20140506
  Transmission Date: 20141212
  Serious: Yes (Other)
  Sender: FDA-Public Use
  Company Number: ADR-2014417059

PATIENT
  Age: 58 Year
  Sex: Male

DRUGS (10)
  1. LISINOPRIL TABLETS, 2.5 MG/ INVAGEN INC. [Suspect]
     Dosage: 2.5 MG, OD, ORAL
     Route: 048
  2. SALBUTAMOL SULPHATE INHALER [Concomitant]
  3. CEFTRIAXONE (ROCEPHIN) [Concomitant]
  4. TRAMODOL HCL [Concomitant]
  5. GLUCOPHAGE [Concomitant]
  6. LEVOTHYROXINE [Concomitant]
  7. ASPIRIN [Concomitant]
  8. ADVAIR DISKUS [Concomitant]
  9. PROMETHAZINE HCL [Concomitant]
  10. LISINOPRIL [Concomitant]

REACTIONS (1)
  - Chronic obstructive pulmonary disease [None]
